FAERS Safety Report 17252213 (Version 3)
Quarter: 2023Q4

REPORT INFORMATION
  Report Type: Spontaneous
  Country: US (occurrence: US)
  Receive Date: 20200109
  Receipt Date: 20231220
  Transmission Date: 20240110
  Serious: No
  Sender: FDA-Public Use
  Company Number: US-PFIZER INC-2019516447

PATIENT
  Age: 78 Year
  Sex: Female
  Weight: 77.11 kg

DRUGS (2)
  1. PREMPRO [Suspect]
     Active Substance: ESTROGENS, CONJUGATED\MEDROXYPROGESTERONE ACETATE
     Indication: Blood oestrogen decreased
     Dosage: UNK (STRENGTH: 0.4/1.5 MG)
  2. PREMPRO [Suspect]
     Active Substance: ESTROGENS, CONJUGATED\MEDROXYPROGESTERONE ACETATE
     Dosage: 1 DF, DAILY [0.04-1.5 MG]

REACTIONS (4)
  - Intentional product misuse [Unknown]
  - Product prescribing error [Unknown]
  - Hot flush [Unknown]
  - Night sweats [Unknown]
